FAERS Safety Report 11142893 (Version 1)
Quarter: 2015Q2

REPORT INFORMATION
  Report Type: Spontaneous
  Country: FR (occurrence: FR)
  Receive Date: 20150525
  Receipt Date: 20150525
  Transmission Date: 20150821
  Serious: Yes (Death, Hospitalization, Other)
  Sender: FDA-Public Use
  Company Number: FR-BRISTOL-MYERS SQUIBB COMPANY-BMS-2015-032239

PATIENT
  Age: 84 Year
  Sex: Male

DRUGS (5)
  1. XATRAL [Concomitant]
     Active Substance: ALFUZOSIN
     Indication: PRODUCT USED FOR UNKNOWN INDICATION
     Dosage: 10 MG, UNK
     Route: 048
  2. AUGMENTIN [Concomitant]
     Active Substance: AMOXICILLIN\CLAVULANATE POTASSIUM
     Indication: PROSTATITIS
     Dosage: UNK
     Route: 048
     Dates: start: 20150220, end: 20150225
  3. LASIX [Concomitant]
     Active Substance: FUROSEMIDE
     Indication: PRODUCT USED FOR UNKNOWN INDICATION
     Dosage: 40 MG, TID
     Route: 048
  4. INEXIUM                            /01479302/ [Concomitant]
     Active Substance: ESOMEPRAZOLE MAGNESIUM
     Indication: PRODUCT USED FOR UNKNOWN INDICATION
     Route: 048
  5. COUMADINE [Suspect]
     Active Substance: WARFARIN SODIUM
     Indication: HAEMORRHAGIC STROKE
     Dosage: 5 MG, QD
     Route: 048
     Dates: end: 20150225

REACTIONS (7)
  - Overdose [Not Recovered/Not Resolved]
  - Renal failure [Not Recovered/Not Resolved]
  - Cachexia [Not Recovered/Not Resolved]
  - International normalised ratio increased [Recovering/Resolving]
  - Haematuria [Not Recovered/Not Resolved]
  - Metabolic disorder [Fatal]
  - Multi-organ failure [Fatal]

NARRATIVE: CASE EVENT DATE: 201502
